FAERS Safety Report 8018176-6 (Version None)
Quarter: 2012Q1

REPORT INFORMATION
  Report Type: 
  Country: None (occurrence: None)
  Receive Date: 20120103
  Receipt Date: 20111222
  Transmission Date: 20120608
  Serious: Yes (Hospitalization)
  Sender: FDA-Public Use
  Company Number: FR-JNJFOC-20111210952

PATIENT
  Sex: Female
  Weight: 27.8 kg

DRUGS (3)
  1. HUMIRA [Concomitant]
     Dates: start: 20100501
  2. PREDNISONE TAB [Concomitant]
  3. REMICADE [Suspect]
     Indication: CROHN'S DISEASE
     Route: 042
     Dates: start: 20061101, end: 20090701

REACTIONS (1)
  - CROHN'S DISEASE [None]
